FAERS Safety Report 17904644 (Version 6)
Quarter: 2020Q4

REPORT INFORMATION
  Report Type: Spontaneous
  Country: US (occurrence: US)
  Receive Date: 20200617
  Receipt Date: 20201207
  Transmission Date: 20210113
  Serious: Yes (Other)
  Sender: FDA-Public Use
  Company Number: US-GILEAD-2020-0471554

PATIENT
  Age: 65 Year
  Sex: Male
  Weight: 88.44 kg

DRUGS (24)
  1. TRUVADA [Suspect]
     Active Substance: EMTRICITABINE\TENOFOVIR DISOPROXIL FUMARATE
     Indication: HIV INFECTION
     Dosage: UNK
     Route: 048
     Dates: start: 20050525, end: 201806
  2. GENVOYA [Concomitant]
     Active Substance: COBICISTAT\ELVITEGRAVIR\EMTRICITABINE\TENOFOVIR ALAFENAMIDE FUMARATE
  3. STRIBILD [Suspect]
     Active Substance: COBICISTAT\ELVITEGRAVIR\EMTRICITABINE\TENOFOVIR DISOPROXIL FUMARATE
     Indication: HIV INFECTION
     Dosage: UNK
     Route: 048
     Dates: start: 20140707, end: 201806
  4. PREDNISONE. [Concomitant]
     Active Substance: PREDNISONE
  5. ZIAGEN [Concomitant]
     Active Substance: ABACAVIR SULFATE
  6. AMOXICILLIN. [Concomitant]
     Active Substance: AMOXICILLIN
  7. CORTISONE [Concomitant]
     Active Substance: CORTISONE
  8. VIREAD [Suspect]
     Active Substance: TENOFOVIR DISOPROXIL FUMARATE
     Indication: HIV INFECTION
     Dosage: UNK
     Route: 048
     Dates: start: 20020111, end: 20050525
  9. ATRIPLA [Suspect]
     Active Substance: EFAVIRENZ\EMTRICITABINE\TENOFOVIR DISOPROXIL FUMARATE
     Indication: PRODUCT USED FOR UNKNOWN INDICATION
     Route: 048
  10. BIKTARVY [Concomitant]
     Active Substance: BICTEGRAVIR SODIUM\EMTRICITABINE\TENOFOVIR ALAFENAMIDE FUMARATE
  11. FAMOTIDINE. [Concomitant]
     Active Substance: FAMOTIDINE
  12. FLOMAX RELIEF [Concomitant]
     Active Substance: TAMSULOSIN HYDROCHLORIDE
  13. EPIVIR [Concomitant]
     Active Substance: LAMIVUDINE
  14. XANAX [Concomitant]
     Active Substance: ALPRAZOLAM
  15. REBETOL [Concomitant]
     Active Substance: RIBAVIRIN
  16. COMBIVIR [Concomitant]
     Active Substance: LAMIVUDINE\ZIDOVUDINE
  17. KALETRA [Concomitant]
     Active Substance: LOPINAVIR\RITONAVIR
  18. SUSTIVA [Concomitant]
     Active Substance: EFAVIRENZ
  19. ATORVASTATIN [Concomitant]
     Active Substance: ATORVASTATIN
  20. MAVYRET [Concomitant]
     Active Substance: GLECAPREVIR\PIBRENTASVIR
  21. INTERFERON [Concomitant]
     Active Substance: INTERFERON
  22. ASPRIN [Concomitant]
     Active Substance: ASPIRIN
  23. COMPLERA [Suspect]
     Active Substance: EMTRICITABINE\RILPIVIRINE HYDROCHLORIDE\TENOFOVIR DISOPROXIL FUMARATE
     Indication: PRODUCT USED FOR UNKNOWN INDICATION
     Route: 048
  24. ACYCLOVIR [ACICLOVIR] [Concomitant]
     Active Substance: ACYCLOVIR

REACTIONS (10)
  - Chronic kidney disease [Unknown]
  - Drug ineffective [Recovered/Resolved]
  - Blood creatinine increased [Not Recovered/Not Resolved]
  - Nephropathy [Unknown]
  - Lumbar vertebral fracture [Unknown]
  - Radiculopathy [Unknown]
  - Multiple fractures [Not Recovered/Not Resolved]
  - Fanconi syndrome acquired [Not Recovered/Not Resolved]
  - Renal failure [Not Recovered/Not Resolved]
  - Viral load increased [Recovered/Resolved]

NARRATIVE: CASE EVENT DATE: 20020111
